FAERS Safety Report 4355599-0 (Version None)
Quarter: 2004Q2

REPORT INFORMATION
  Report Type: 
  Country: None (occurrence: None)
  Receive Date: 20040510
  Receipt Date: 20040427
  Transmission Date: 20050107
  Serious: Yes (Hospitalization)
  Sender: FDA-Public Use
  Company Number: HK-GLAXOSMITHKLINE-B0331849A

PATIENT
  Age: 32 Year
  Sex: Male

DRUGS (5)
  1. LAMIVUDINE [Suspect]
     Indication: HEPATITIS B
     Dosage: 100MG PER DAY
     Dates: start: 20001001
  2. TACROLIMUS [Concomitant]
     Indication: IMMUNOSUPPRESSION
  3. STEROID [Concomitant]
     Indication: IMMUNOSUPPRESSION
     Dates: end: 20010601
  4. ADEFOVIR DIPIVOXIL [Concomitant]
     Dosage: 10MG PER DAY
     Dates: start: 20011201
  5. H-BIG [Concomitant]

REACTIONS (8)
  - BLOOD BILIRUBIN INCREASED [None]
  - DRUG INEFFECTIVE [None]
  - HEPATIC ENCEPHALOPATHY [None]
  - HEPATITIS CHOLESTATIC [None]
  - INTERNATIONAL NORMALISED RATIO INCREASED [None]
  - PROTHROMBIN TIME PROLONGED [None]
  - TRANSPLANT REJECTION [None]
  - VIRAL MUTATION IDENTIFIED [None]
